FAERS Safety Report 19055799 (Version 1)
Quarter: 2021Q1

REPORT INFORMATION
  Report Type: Spontaneous
  Country: US (occurrence: US)
  Receive Date: 20210324
  Receipt Date: 20210324
  Transmission Date: 20210420
  Serious: Yes (Death)
  Sender: FDA-Public Use
  Company Number: None

PATIENT
  Age: 22 Year
  Sex: Male

DRUGS (12)
  1. PULMOZYME [Suspect]
     Active Substance: DORNASE ALFA
     Route: 055
     Dates: start: 20170627
  2. MAGNESIUM OXIDE. [Concomitant]
     Active Substance: MAGNESIUM OXIDE
  3. HYDROCHLORTHIAZIDE [Concomitant]
     Active Substance: HYDROCHLOROTHIAZIDE
  4. NITROFURANTOIN. [Concomitant]
     Active Substance: NITROFURANTOIN
  5. VALPROIC ACID. [Concomitant]
     Active Substance: VALPROIC ACID
  6. BACLOFEN. [Concomitant]
     Active Substance: BACLOFEN
  7. LEVETIRACETAM. [Concomitant]
     Active Substance: LEVETIRACETAM
  8. BUDESONIDE. [Concomitant]
     Active Substance: BUDESONIDE
  9. MONTELUKAST [Concomitant]
     Active Substance: MONTELUKAST SODIUM
  10. ATENOLOL. [Concomitant]
     Active Substance: ATENOLOL
  11. GABAPENTIN. [Concomitant]
     Active Substance: GABAPENTIN
  12. CUVPOSA [Concomitant]
     Active Substance: GLYCOPYRROLATE

REACTIONS (1)
  - Pulmonary function test decreased [None]
